FAERS Safety Report 7945482-3 (Version None)
Quarter: 2011Q4

REPORT INFORMATION
  Report Type: 
  Country: None (occurrence: None)
  Receive Date: 20111129
  Receipt Date: 20090622
  Transmission Date: 20120403
  Serious: No
  Sender: FDA-Public Use
  Company Number: US-ENDO PHARMACEUTICALS INC.-SUTR20110023

PATIENT
  Sex: Female

DRUGS (2)
  1. SULFAMETHOXAZOLE AND TRIMETHOPRIM [Suspect]
     Indication: URINARY TRACT INFECTION
     Route: 048
     Dates: start: 20090519, end: 20090605
  2. DESSICATED THYROID [Concomitant]

REACTIONS (14)
  - BLOOD SODIUM DECREASED [None]
  - MUSCULOSKELETAL STIFFNESS [None]
  - URINE OUTPUT DECREASED [None]
  - ASTHENIA [None]
  - RESPIRATORY FAILURE [None]
  - MOOD ALTERED [None]
  - BLOOD POTASSIUM INCREASED [None]
  - HAEMATURIA [None]
  - GAIT DISTURBANCE [None]
  - COMMUNICATION DISORDER [None]
  - TREMOR [None]
  - DECREASED APPETITE [None]
  - LETHARGY [None]
  - DIARRHOEA [None]
